FAERS Safety Report 8312642-1 (Version None)
Quarter: 2012Q2

REPORT INFORMATION
  Report Type: 
  Country: None (occurrence: None)
  Receive Date: 20120424
  Receipt Date: 20120410
  Transmission Date: 20120825
  Serious: Yes (Life-Threatening, Disabling, Other)
  Sender: FDA-Public Use
  Company Number: FK201200398

PATIENT
  Age: 67 Year
  Sex: Female

DRUGS (2)
  1. METHOTREXATE [Suspect]
     Dosage: 50 MG, 1 N 1 WK, SUBCUTANEOUS
     Route: 058
     Dates: start: 20100101
  2. ENBREL [Suspect]
     Indication: RHEUMATOID ARTHRITIS
     Dosage: 50 MG, 1 IN 1 WK, SUBCUTANEOUS
     Route: 058
     Dates: start: 20100719, end: 20110818

REACTIONS (2)
  - PNEUMONIA [None]
  - RECTAL CANCER [None]
